FAERS Safety Report 13916869 (Version 2)
Quarter: 2017Q3

REPORT INFORMATION
  Report Type: Spontaneous
  Country: US (occurrence: US)
  Receive Date: 20170829
  Receipt Date: 20170920
  Transmission Date: 20171127
  Serious: Yes (Hospitalization, Other)
  Sender: FDA-Public Use
  Company Number: US-BRISTOL-MYERS SQUIBB COMPANY-BMS-2017-075865

PATIENT
  Age: 36 Year
  Sex: Male

DRUGS (1)
  1. ABILIFY [Suspect]
     Active Substance: ARIPIPRAZOLE
     Indication: AFFECTIVE DISORDER
     Dosage: 1 DF, UNK
     Route: 065
     Dates: start: 20110211, end: 201510

REACTIONS (8)
  - Emotional distress [Unknown]
  - Obsessive-compulsive disorder [Unknown]
  - Injury [Unknown]
  - Gambling disorder [Unknown]
  - Product use in unapproved indication [Unknown]
  - Brain injury [Unknown]
  - Gambling [Unknown]
  - Mental disorder [Unknown]

NARRATIVE: CASE EVENT DATE: 20120531
